FAERS Safety Report 18006243 (Version 1)
Quarter: 2020Q3

REPORT INFORMATION
  Report Type: Spontaneous
  Country: US (occurrence: US)
  Receive Date: 20200710
  Receipt Date: 20200710
  Transmission Date: 20201103
  Serious: Yes (Other)
  Sender: FDA-Public Use
  Company Number: None

PATIENT
  Age: 39 Year
  Sex: Male
  Weight: .23 kg

DRUGS (5)
  1. GERM?X [Suspect]
     Active Substance: ALCOHOL
     Indication: INFECTION PROPHYLAXIS
     Dosage: ?          QUANTITY:1 8FLOZ BOTTLE;?
     Route: 061
     Dates: start: 20200625, end: 20200701
  2. HUMALOG [Concomitant]
     Active Substance: INSULIN LISPRO
  3. LEVEMIR [Concomitant]
     Active Substance: INSULIN DETEMIR
  4. VITAMIN C [Concomitant]
     Active Substance: ASCORBIC ACID
  5. GLUCOMETER [Concomitant]

REACTIONS (6)
  - Vomiting [None]
  - Nausea [None]
  - Product odour abnormal [None]
  - Suspected counterfeit product [None]
  - Headache [None]
  - Suspected product quality issue [None]

NARRATIVE: CASE EVENT DATE: 20200701
